FAERS Safety Report 24676719 (Version 4)
Quarter: 2025Q4

REPORT INFORMATION
  Report Type: Report from Study
  Country: US (occurrence: US)
  Receive Date: 20241128
  Receipt Date: 20251009
  Transmission Date: 20260118
  Serious: Yes (Other)
  Sender: ABBVIE
  Company Number: US-ABBVIE-6021384

PATIENT
  Sex: Male

DRUGS (2)
  1. RINVOQ [Suspect]
     Active Substance: UPADACITINIB
     Indication: Rheumatoid arthritis
     Route: 048
  2. RINVOQ [Suspect]
     Active Substance: UPADACITINIB
     Indication: Rheumatoid arthritis
     Route: 048
     Dates: start: 20220311

REACTIONS (6)
  - Carpal tunnel syndrome [Recovering/Resolving]
  - Arthropathy [Unknown]
  - Pain in extremity [Unknown]
  - Eczema [Unknown]
  - Musculoskeletal stiffness [Unknown]
  - Arthropathy [Recovering/Resolving]
